FAERS Safety Report 10616141 (Version 2)
Quarter: 2014Q4

REPORT INFORMATION
  Report Type: Spontaneous
  Country: SE (occurrence: SE)
  Receive Date: 20141201
  Receipt Date: 20141230
  Transmission Date: 20150529
  Serious: Yes (Other)
  Sender: FDA-Public Use
  Company Number: SE-CELGENE-150-50794-14080873

PATIENT
  Age: 78 Year

DRUGS (4)
  1. ELTROMBOPAG [Concomitant]
     Active Substance: ELTROMBOPAG
     Dosage: 200-300
     Route: 048
  2. ELTROMBOPAG [Concomitant]
     Active Substance: ELTROMBOPAG
     Dosage: 100-200
     Route: 048
  3. ELTROMBOPAG [Concomitant]
     Active Substance: ELTROMBOPAG
     Indication: MYELODYSPLASTIC SYNDROME
     Dosage: 50-100MG
     Route: 048
  4. VIDAZA [Suspect]
     Active Substance: AZACITIDINE
     Indication: MYELODYSPLASTIC SYNDROME
     Dosage: 17.8571 MILLIGRAM/SQ. METER
     Route: 058

REACTIONS (3)
  - Myelodysplastic syndrome [Unknown]
  - Hepatotoxicity [Unknown]
  - Deep vein thrombosis [Unknown]
